FAERS Safety Report 7027013-8 (Version None)
Quarter: 2010Q4

REPORT INFORMATION
  Report Type: 
  Country: None (occurrence: None)
  Receive Date: 20101004
  Receipt Date: 20100922
  Transmission Date: 20110411
  Serious: Yes (Death)
  Sender: FDA-Public Use
  Company Number: DE-WYE-H17760910

PATIENT
  Sex: Female
  Weight: 80 kg

DRUGS (4)
  1. SIROLIMUS [Suspect]
     Indication: CHRONIC GRAFT VERSUS HOST DISEASE
     Dosage: DOSE VARYING/ADJUSTED TO DRUG LEVEL (TARGET LEVEL 3-8 NG/ML)
     Dates: start: 20050623, end: 20051203
  2. SIROLIMUS [Suspect]
     Indication: SCLERODERMA
  3. ISOTRETINOIN [Concomitant]
  4. PREDNISOLONE [Concomitant]

REACTIONS (3)
  - HERPES ZOSTER [None]
  - MULTI-ORGAN FAILURE [None]
  - SYSTEMIC INFLAMMATORY RESPONSE SYNDROME [None]
